FAERS Safety Report 21393724 (Version 1)
Quarter: 2022Q3

REPORT INFORMATION
  Report Type: Spontaneous
  Country: US (occurrence: US)
  Receive Date: 20220930
  Receipt Date: 20220930
  Transmission Date: 20221027
  Serious: No
  Sender: FDA-Public Use
  Company Number: US-JNJFOC-20220922998

PATIENT
  Age: 65 Year
  Sex: Female
  Weight: 65.8 kg

DRUGS (7)
  1. IMODIUM [Suspect]
     Active Substance: LOPERAMIDE HYDROCHLORIDE
     Indication: Diarrhoea
     Dosage: WAS TAKING A COUPLE OF IMODIUM A DAY A FEW HOURS APART AND DID NOT TOLERATE TAKING 2 IMODIUM AT ONCE
     Route: 065
  2. TREPROSTINIL [Suspect]
     Active Substance: TREPROSTINIL
     Indication: Pulmonary arterial hypertension
     Dosage: ORAL TREPROSTINIL
     Route: 048
     Dates: start: 20161130
  3. TREPROSTINIL [Suspect]
     Active Substance: TREPROSTINIL
     Dosage: ORENITRAM
     Route: 048
  4. TREPROSTINIL [Suspect]
     Active Substance: TREPROSTINIL
     Dosage: ORENITRAM
     Route: 048
  5. TREPROSTINIL [Suspect]
     Active Substance: TREPROSTINIL
     Dosage: ORENITRAM
     Route: 048
  6. OPSUMIT [Concomitant]
     Active Substance: MACITENTAN
     Indication: Product used for unknown indication
     Route: 065
  7. TADALAFIL [Concomitant]
     Active Substance: TADALAFIL
     Indication: Product used for unknown indication
     Route: 065

REACTIONS (3)
  - Drug intolerance [Unknown]
  - Asthenia [Unknown]
  - Off label use [Unknown]
